FAERS Safety Report 4941610-2 (Version None)
Quarter: 2006Q1

REPORT INFORMATION
  Report Type: 
  Country: None (occurrence: None)
  Receive Date: 20060308
  Receipt Date: 20060223
  Transmission Date: 20060701
  Serious: Yes (Hospitalization)
  Sender: FDA-Public Use
  Company Number: 2006028462

PATIENT
  Sex: Male

DRUGS (13)
  1. DIFLUCAN [Suspect]
     Indication: ILL-DEFINED DISORDER
     Dosage: 50 MG (50 MG, 1 IN 1 D), ORAL
     Route: 048
     Dates: start: 20051116, end: 20051201
  2. MARCUMAR [Suspect]
     Indication: ATRIAL FIBRILLATION
     Dosage: (3 MG, AS NECESSARY), ORAL
     Route: 048
     Dates: start: 20050819
  3. MARCUMAR [Suspect]
     Indication: CARDIAC FLUTTER
     Dosage: (3 MG, AS NECESSARY), ORAL
     Route: 048
     Dates: start: 20050819
  4. BRUFEN (IBUPROFEN) [Suspect]
     Indication: PAIN
     Dosage: 1800 MG (600 MG, 3 IN 1 D), ORAL
     Route: 048
     Dates: start: 20051114, end: 20051121
  5. OMEPRAZOLE [Concomitant]
  6. RAMIPRIL [Concomitant]
  7. ALDACTONE [Concomitant]
  8. TOREM (TORASEMIDE) [Concomitant]
  9. METOPROLOL TARTRATE [Concomitant]
  10. NITRODERM [Concomitant]
  11. SPIRIVA [Concomitant]
  12. MORPHINE SULFATE [Concomitant]
  13. SANGEROL (LIDOCAINE HYDROCHLORIDE, LYSOZYME HYDROCHLORIDE, TYROTHRICIN [Concomitant]

REACTIONS (12)
  - ANAEMIA [None]
  - ANGIOPATHY [None]
  - DIZZINESS [None]
  - DRUG EFFECT DECREASED [None]
  - DRUG INTERACTION [None]
  - DUODENAL ULCER HAEMORRHAGE [None]
  - ERUCTATION [None]
  - HIATUS HERNIA [None]
  - INTERNATIONAL NORMALISED RATIO INCREASED [None]
  - PAIN [None]
  - PROTHROMBIN TIME PROLONGED [None]
  - REFLUX OESOPHAGITIS [None]
